FAERS Safety Report 23951816 (Version 1)
Quarter: 2024Q2

REPORT INFORMATION
  Report Type: Spontaneous
  Country: ES (occurrence: ES)
  Receive Date: 20240607
  Receipt Date: 20240607
  Transmission Date: 20240716
  Serious: Yes (Hospitalization, Other)
  Sender: FDA-Public Use
  Company Number: ES-EMA-DD-20240313-7482705-115923

PATIENT
  Age: 48 Year
  Sex: Female
  Weight: 73 kg

DRUGS (9)
  1. LENALIDOMIDE [Suspect]
     Active Substance: LENALIDOMIDE
     Indication: Follicular lymphoma
     Dosage: 20 MG, EVERY 1 DAY (DAYS 1-21 FROM A 28 DAY CYCLE)
     Route: 048
     Dates: start: 20230328, end: 20230412
  2. LENALIDOMIDE [Suspect]
     Active Substance: LENALIDOMIDE
     Dosage: 20 MG, DAYS 1-21 FROM A 28 DAY CYCLE
     Route: 048
     Dates: start: 20230417
  3. RITUXIMAB [Suspect]
     Active Substance: RITUXIMAB
     Indication: Follicular lymphoma
     Dosage: UNK
     Route: 065
     Dates: start: 20220217, end: 20220601
  4. RITUXIMAB [Suspect]
     Active Substance: RITUXIMAB
     Dosage: 375 MG/M2, EVERY 1 WEEKS
     Route: 065
     Dates: start: 20230328
  5. RITUXIMAB [Suspect]
     Active Substance: RITUXIMAB
     Dosage: UNK
     Route: 065
     Dates: start: 20220720, end: 20230118
  6. EPCORITAMAB [Suspect]
     Active Substance: EPCORITAMAB
     Indication: Follicular lymphoma
     Dosage: 24 MG (FULL DOSE; C1, D15, TOTAL)
     Route: 065
     Dates: start: 20230411, end: 20230411
  7. EPCORITAMAB [Suspect]
     Active Substance: EPCORITAMAB
     Dosage: UNK
     Route: 065
     Dates: start: 20230328, end: 20230411
  8. EPCORITAMAB [Suspect]
     Active Substance: EPCORITAMAB
     Dosage: 0.16 MG PRIMING DOSE; C1, D1, TOTAL; 0.8 MG INTERMEDIATE DOSE; C1, D8, TOTAL
     Route: 065
     Dates: start: 20230328, end: 20230328
  9. EPCORITAMAB [Suspect]
     Active Substance: EPCORITAMAB
     Dosage: 0.16 MG PRIMING DOSE; C1, D1, TOTAL; 0.8 MG INTERMEDIATE DOSE; C1, D8, TOTAL
     Route: 065
     Dates: start: 20230404, end: 20230404

REACTIONS (1)
  - Cytokine release syndrome [Not Recovered/Not Resolved]

NARRATIVE: CASE EVENT DATE: 20230413
